FAERS Safety Report 8584657-X (Version None)
Quarter: 2012Q3

REPORT INFORMATION
  Report Type: 
  Country: None (occurrence: None)
  Receive Date: 20120810
  Receipt Date: 20120731
  Transmission Date: 20120928
  Serious: Yes (Hospitalization)
  Sender: FDA-Public Use
  Company Number: US-BAYER-2012-046732

PATIENT
  Sex: Female

DRUGS (29)
  1. TOPAMAX [Concomitant]
  2. ALBUTEROL [Concomitant]
  3. DARVOCET [Concomitant]
     Dosage: 650 UNK, UNK
     Dates: start: 20091224
  4. VANTIN [Concomitant]
     Dosage: 250 MG, BID
     Dates: start: 20091224
  5. VANTIN [Concomitant]
     Dosage: 250 MG, BID
     Dates: start: 20091226
  6. ATROVENT [Concomitant]
     Dosage: UNK
     Dates: start: 20091226
  7. PHENERGAN EXPECTORANT W/ CODEINE [Concomitant]
     Indication: COUGH
     Dosage: UNK
     Dates: start: 20091226
  8. YASMIN [Suspect]
  9. ZITHROMAX [Concomitant]
     Dosage: 500 UNK, UNK
     Dates: start: 20091219
  10. EFFEXOR [Concomitant]
  11. FLUTICASONE PROPIONATE [Concomitant]
  12. YAZ [Suspect]
     Indication: PREMENSTRUAL SYNDROME
     Route: 048
  13. SINGULAIR [Concomitant]
  14. PROTONIX [Concomitant]
  15. ZITHROMAX [Concomitant]
     Dosage: 500 UNK, UNK
     Dates: start: 20091224
  16. PROVENTIL [Concomitant]
  17. IBUPROFEN [Concomitant]
  18. ATIVAN [Concomitant]
  19. CLARITHROMYCIN [Concomitant]
     Dosage: 500 MG, UNK
     Dates: start: 20091002
  20. LAMICTAL [Concomitant]
  21. GEODON [Concomitant]
  22. CYCLOBENZAPRINE [Concomitant]
     Dosage: 10 MG, UNK
     Dates: start: 20091028
  23. YAZ [Suspect]
     Indication: DYSFUNCTIONAL UTERINE BLEEDING
  24. YAZ [Suspect]
     Indication: MENSTRUATION IRREGULAR
  25. ROBITUSSIN ALLERGY AND COUGH [Concomitant]
     Dosage: UNK
     Dates: start: 20091226
  26. TRAZODONE HCL [Concomitant]
  27. ALBUTEROL [Concomitant]
     Dosage: UNK
     Dates: start: 20091226
  28. MIDRIN [Concomitant]
     Dosage: UNK UNK, PRN
  29. AVELOX [Concomitant]

REACTIONS (6)
  - PAIN [None]
  - INJURY [None]
  - ANXIETY [None]
  - PULMONARY EMBOLISM [None]
  - ANHEDONIA [None]
  - QUALITY OF LIFE DECREASED [None]
